FAERS Safety Report 6917050-3 (Version None)
Quarter: 2010Q3

REPORT INFORMATION
  Report Type: 
  Country: None (occurrence: None)
  Receive Date: 20100810
  Receipt Date: 20100802
  Transmission Date: 20110219
  Serious: Yes (Death)
  Sender: FDA-Public Use
  Company Number: A0874607A

PATIENT
  Age: 57 Year
  Sex: Male

DRUGS (1)
  1. ARIXTRA [Suspect]
     Indication: PRODUCT USED FOR UNKNOWN INDICATION
     Route: 058
     Dates: start: 20090827, end: 20100713

REACTIONS (3)
  - DISEASE COMPLICATION [None]
  - LUNG DISORDER [None]
  - LUNG NEOPLASM MALIGNANT [None]
